FAERS Safety Report 9405497 (Version 2)
Quarter: 2013Q3

REPORT INFORMATION
  Report Type: Spontaneous
  Country: US (occurrence: US)
  Receive Date: 20130717
  Receipt Date: 20130807
  Transmission Date: 20140515
  Serious: Yes (Other)
  Sender: FDA-Public Use
  Company Number: US-ACTAVIS-2013-12163

PATIENT
  Age: 77 Year
  Sex: Male

DRUGS (4)
  1. GALANTAMINE HYDROBROMIDE (WATSON LABORATORIES) [Suspect]
     Indication: DEMENTIA
     Dosage: 8 MG, DAILY
     Route: 065
  2. GALANTAMINE HYDROBROMIDE (WATSON LABORATORIES) [Suspect]
     Dosage: 8 MG, DAILY
     Route: 065
  3. SIMVASTATIN [Concomitant]
     Indication: HYPERCHOLESTEROLAEMIA
     Dosage: 20 MG, DAILY
     Route: 065
  4. TAMSULOSIN [Concomitant]
     Indication: BENIGN PROSTATIC HYPERPLASIA
     Dosage: 0.4 MG, DAILY
     Route: 065

REACTIONS (1)
  - Nightmare [Recovered/Resolved]
